FAERS Safety Report 8973660 (Version 1)
Quarter: 2012Q4

REPORT INFORMATION
  Report Type: 
  Country: US (occurrence: US)
  Receive Date: 20121218
  Receipt Date: 20121218
  Transmission Date: 20130627
  Serious: No
  Sender: FDA-Public Use
  Company Number: US-BRISTOL-MYERS SQUIBB COMPANY-16910572

PATIENT
  Age: 6 None
  Sex: Female

DRUGS (4)
  1. ABILIFY [Suspect]
     Dosage: for 2-2.5 weeks
  2. PROZAC [Concomitant]
  3. KLONOPIN [Concomitant]
  4. LAMICTAL [Concomitant]

REACTIONS (1)
  - Oedema peripheral [Recovered/Resolved]
